FAERS Safety Report 23182407 (Version 1)
Quarter: 2023Q4

REPORT INFORMATION
  Report Type: Spontaneous
  Country: US (occurrence: None)
  Receive Date: 20231114
  Receipt Date: 20231114
  Transmission Date: 20240109
  Serious: Yes (Hospitalization)
  Sender: FDA-Public Use
  Company Number: None

PATIENT
  Age: 13 Year
  Sex: Male

DRUGS (2)
  1. CREON [Suspect]
     Active Substance: PANCRELIPASE AMYLASE\PANCRELIPASE LIPASE\PANCRELIPASE PROTEASE
     Indication: Cystic fibrosis
     Dosage: 12000-38000 UNIT  ORAL??TAKE 4 CAPSULES BY MOUTH WITH EACH MEAL AND TAKE 3 CAPSULES WITH EACH SNACK
     Route: 048
     Dates: start: 20220701
  2. ALBUTEROL [Concomitant]
     Active Substance: ALBUTEROL

REACTIONS (1)
  - Constipation [None]

NARRATIVE: CASE EVENT DATE: 20231112
